FAERS Safety Report 12639263 (Version 1)
Quarter: 2016Q3

REPORT INFORMATION
  Report Type: Spontaneous
  Country: GB (occurrence: None)
  Receive Date: 20160808
  Receipt Date: 20160808
  Transmission Date: 20161109
  Serious: Yes (Other)
  Sender: FDA-Public Use
  Company Number: GB2016K3795SPO

PATIENT
  Age: 41 Year
  Sex: Female

DRUGS (11)
  1. CYCLOPHOSPHAMIDE (CYCLOPHOSPHAMIDE) [Suspect]
     Active Substance: CYCLOPHOSPHAMIDE
  2. NEULASTA [Suspect]
     Active Substance: PEGFILGRASTIM
     Dates: start: 20160603
  3. TAXOTERE [Suspect]
     Active Substance: DOCETAXEL
  4. DOMPERIDONE (DOMPERIDONE) [Suspect]
     Active Substance: DOMPERIDONE
  5. PALONOSETRON HYDROCHLORIDE (PALONOSETRON HYDROCHLORIDE) [Suspect]
     Active Substance: PALONOSETRON HYDROCHLORIDE
  6. METOCLOPRAMIDE (METOCLOPRAMIDE) [Suspect]
     Active Substance: METOCLOPRAMIDE
  7. DEXAMETHASONE (DEXAMETHASONE) [Suspect]
     Active Substance: DEXAMETHASONE
     Route: 048
  8. DOCETAXEL (DOCETAXEL) [Suspect]
     Active Substance: DOCETAXEL
     Dates: start: 20160602
  9. APREPITANT (APREPITANT) [Suspect]
     Active Substance: APREPITANT
     Route: 048
  10. LANSOPRAZOLE GENERIC (LANSOPRAZOLE) UNKNOWN [Suspect]
     Active Substance: LANSOPRAZOLE
  11. EPIRUBICIN (EPIRUBICIN) [Suspect]
     Active Substance: EPIRUBICIN

REACTIONS (18)
  - Fatigue [None]
  - Pyrexia [None]
  - Epistaxis [None]
  - Catheter site vesicles [None]
  - Application site erythema [None]
  - Ear discomfort [None]
  - Condition aggravated [None]
  - Application site pruritus [None]
  - Pain in extremity [None]
  - Neuropathy peripheral [None]
  - Oedema peripheral [None]
  - Haemoglobin decreased [None]
  - Joint swelling [None]
  - Rosacea [None]
  - Alopecia [None]
  - Peripheral swelling [None]
  - Limb discomfort [None]
  - Thrombosis [None]

NARRATIVE: CASE EVENT DATE: 20160408
